FAERS Safety Report 12101994 (Version 1)
Quarter: 2016Q1

REPORT INFORMATION
  Report Type: Spontaneous
  Country: US (occurrence: US)
  Receive Date: 20160222
  Receipt Date: 20160222
  Transmission Date: 20160526
  Serious: No
  Sender: FDA-Public Use
  Company Number: US-ACORDA-ACO_112007_2015

PATIENT
  Sex: Female

DRUGS (1)
  1. AMPYRA [Suspect]
     Active Substance: DALFAMPRIDINE
     Indication: GAIT DISTURBANCE
     Dosage: UNK
     Route: 065

REACTIONS (6)
  - Body temperature increased [Unknown]
  - Visual acuity reduced [Unknown]
  - Agitation [Unknown]
  - Feeling abnormal [Unknown]
  - Cognitive disorder [Unknown]
  - Sinusitis [Recovered/Resolved]
